FAERS Safety Report 7161656-6 (Version None)
Quarter: 2010Q4

REPORT INFORMATION
  Report Type: 
  Country: None (occurrence: None)
  Receive Date: 20101201
  Receipt Date: 20101115
  Transmission Date: 20110411
  Serious: Yes (Hospitalization)
  Sender: FDA-Public Use
  Company Number: TPG2010A00613

PATIENT
  Age: 68 Year
  Sex: Male

DRUGS (5)
  1. ACTOS [Suspect]
     Indication: DIABETES MELLITUS
     Dosage: 30 MG (30 MG,1 IN 1 D) PER ORAL
     Route: 048
  2. METFORMIN HCL [Concomitant]
  3. LANICOR (DIGOXIN) [Concomitant]
  4. BISOPROLOL (BISOPROLOL) [Concomitant]
  5. LORZAAR (LOSARTAN POTASSIUM) [Concomitant]

REACTIONS (2)
  - BLADDER CANCER [None]
  - VISION BLURRED [None]
